FAERS Safety Report 11289574 (Version 1)
Quarter: 2015Q3

REPORT INFORMATION
  Report Type: Spontaneous
  Country: US (occurrence: US)
  Receive Date: 20150721
  Receipt Date: 20150721
  Transmission Date: 20151125
  Serious: Yes (Hospitalization, Other)
  Sender: FDA-Public Use
  Company Number: US-GLAXOSMITHKLINE-US2015103972

PATIENT
  Sex: Male

DRUGS (1)
  1. CARVEDILOL. [Suspect]
     Active Substance: CARVEDILOL
     Indication: CARDIAC FAILURE CONGESTIVE
     Dosage: 50 MG, QD
     Route: 048
     Dates: start: 2006

REACTIONS (3)
  - Cardiac pacemaker insertion [Recovered/Resolved]
  - Atrial fibrillation [Recovered/Resolved]
  - Cardiac ablation [Recovered/Resolved]
